FAERS Safety Report 5244839-1 (Version None)
Quarter: 2007Q1

REPORT INFORMATION
  Report Type: 
  Country: None (occurrence: None)
  Receive Date: 20070216
  Receipt Date: 20070201
  Transmission Date: 20070707
  Serious: Yes (Hospitalization)
  Sender: FDA-Public Use
  Company Number: DEPFP-S-20060028

PATIENT
  Age: 61 Year
  Sex: Female

DRUGS (1)
  1. NAVELBINE [Suspect]
     Indication: BREAST CANCER
     Dates: start: 20060320, end: 20060721

REACTIONS (2)
  - DERMATOMYOSITIS [None]
  - POLYNEUROPATHY [None]
